FAERS Safety Report 14785110 (Version 2)
Quarter: 2018Q2

REPORT INFORMATION
  Report Type: Spontaneous
  Country: ZA (occurrence: ZA)
  Receive Date: 20180420
  Receipt Date: 20180618
  Transmission Date: 20180711
  Serious: Yes (Hospitalization, Other)
  Sender: FDA-Public Use
  Company Number: ZA-PFIZER INC-2018159981

PATIENT
  Age: 65 Year
  Sex: Male

DRUGS (19)
  1. EUTHYROX [Suspect]
     Active Substance: LEVOTHYROXINE SODIUM
     Dosage: 100 UG, UNK
  2. NORFLEX [Suspect]
     Active Substance: ORPHENADRINE CITRATE
     Dosage: 100 MG, UNK
  3. AVAMYS [Suspect]
     Active Substance: FLUTICASONE FUROATE
     Dosage: 27 UG, UNK
  4. ASPAVOR [Suspect]
     Active Substance: ATORVASTATIN
     Dosage: 20 MG, UNK
  5. NAVALPRO [Suspect]
     Active Substance: VALPROIC ACID
     Dosage: 500 MG, UNK
  6. ECOTRIN [Suspect]
     Active Substance: ASPIRIN
     Dosage: 81 MG, UNK
  7. ALDACTONE [Suspect]
     Active Substance: SPIRONOLACTONE
     Dosage: 25 MG, UNK
  8. TRAMACET [Suspect]
     Active Substance: ACETAMINOPHEN\TRAMADOL
     Dosage: UNK
  9. CARBILEV [Suspect]
     Active Substance: CARBIDOPA\LEVODOPA
     Dosage: 25/250 MG
  10. LASIX R [Suspect]
     Active Substance: FUROSEMIDE\RESERPINE
     Dosage: 60 MG, UNK
  11. GLUCOPHAGE XR [Suspect]
     Active Substance: METFORMIN HYDROCHLORIDE
     Dosage: 500 MG, UNK
  12. CALCIFEROL [Suspect]
     Active Substance: ERGOCALCIFEROL
     Dosage: 50000 IU, UNK
  13. PURATA [Suspect]
     Active Substance: OXAZEPAM
     Dosage: 30 MG, UNK
  14. RISNIA [Suspect]
     Active Substance: RISPERIDONE
     Dosage: 3 MG, UNK
  15. PLENISH-K [Suspect]
     Active Substance: POTASSIUM CHLORIDE
     Dosage: 600 MG, UNK
  16. HUMALOG MIX [Suspect]
     Active Substance: INSULIN LISPRO
     Dosage: UNK (25 KWIKPEN)
  17. INDOBLOK [Suspect]
     Active Substance: PROPRANOLOL HYDROCHLORIDE
     Dosage: 10 MG, UNK
  18. TEGRETOL XR [Suspect]
     Active Substance: CARBAMAZEPINE
     Dosage: 400 MG, UNK
  19. SERDEP (SERTRALINE HYDROCHLORIDE) [Suspect]
     Active Substance: SERTRALINE HYDROCHLORIDE
     Dosage: 50 MG, UNK

REACTIONS (1)
  - Kidney infection [Recovering/Resolving]
